FAERS Safety Report 8786699 (Version 1)
Quarter: 2012Q4

REPORT INFORMATION
  Report Type: 
  Country: US (occurrence: US)
  Receive Date: 20120914
  Receipt Date: 20120914
  Transmission Date: 20130627
  Serious: No
  Sender: FDA-Public Use
  Company Number: US-BIOGENIDEC-2012BI036718

PATIENT
  Age: 65 Year
  Sex: Female

DRUGS (5)
  1. TYSABRI [Suspect]
     Indication: MULTIPLE SCLEROSIS
     Route: 042
     Dates: start: 20090821, end: 20100527
  2. TYSABRI [Suspect]
     Indication: MULTIPLE SCLEROSIS
     Route: 042
     Dates: start: 20120531
  3. AVONEX [Concomitant]
     Indication: MULTIPLE SCLEROSIS
     Route: 030
     Dates: start: 20091001
  4. AVONEX [Concomitant]
     Indication: MULTIPLE SCLEROSIS
     Route: 030
     Dates: start: 20110418
  5. AVONEX [Concomitant]
     Indication: MULTIPLE SCLEROSIS
     Route: 030
     Dates: start: 20080505

REACTIONS (6)
  - Blood pressure diastolic decreased [Recovered/Resolved]
  - Paraesthesia oral [Recovered/Resolved]
  - Muscle spasms [Recovered/Resolved]
  - Lip swelling [Recovered/Resolved]
  - Multiple sclerosis relapse [Recovered/Resolved]
  - Cystitis [Recovered/Resolved]
